FAERS Safety Report 5197413-X (Version None)
Quarter: 2006Q4

REPORT INFORMATION
  Report Type: 
  Country: None (occurrence: None)
  Receive Date: 20060928
  Receipt Date: 20051111
  Transmission Date: 20070319
  Serious: Yes (Other)
  Sender: FDA-Public Use
  Company Number: HQWYE553015NOV05

PATIENT
  Sex: 0

DRUGS (1)
  1. RAPAMUNE [Suspect]

REACTIONS (1)
  - ALVEOLITIS ALLERGIC [None]
